FAERS Safety Report 5029035-5 (Version None)
Quarter: 2006Q2

REPORT INFORMATION
  Report Type: 
  Country: None (occurrence: None)
  Receive Date: 20060619
  Receipt Date: 20060616
  Transmission Date: 20061013
  Serious: Yes (Death, Hospitalization)
  Sender: FDA-Public Use
  Company Number: PHBS2006MY08941

PATIENT
  Age: 41 Year
  Sex: Female
  Weight: 32 kg

DRUGS (3)
  1. PERPHENAZINE [Concomitant]
     Dosage: 8 MG, BID
     Route: 065
  2. LORAZEPAM [Concomitant]
     Dosage: 1 MG, BID
     Route: 065
  3. CLOZAPINE [Suspect]
     Indication: SCHIZOPHRENIA
     Dosage: 150 MG/D
     Dates: start: 20060608, end: 20060611

REACTIONS (2)
  - ABDOMINAL DISTENSION [None]
  - SURGERY [None]
